FAERS Safety Report 6975352-9 (Version None)
Quarter: 2010Q3

REPORT INFORMATION
  Report Type: 
  Country: None (occurrence: None)
  Receive Date: 20100910
  Receipt Date: 20090312
  Transmission Date: 20110219
  Serious: No
  Sender: FDA-Public Use
  Company Number: US-WYE-H08565409

PATIENT
  Sex: Female
  Weight: 72.19 kg

DRUGS (4)
  1. PRISTIQ [Suspect]
     Indication: PANIC ATTACK
     Dosage: UNKNOWN
     Route: 048
     Dates: start: 20081101
  2. PRISTIQ [Suspect]
     Route: 048
  3. PRISTIQ [Suspect]
     Route: 048
  4. METOPROLOL TARTRATE [Concomitant]

REACTIONS (2)
  - BLOOD PRESSURE DECREASED [None]
  - DRUG WITHDRAWAL SYNDROME [None]
